FAERS Safety Report 6814644-0 (Version None)
Quarter: 2010Q3

REPORT INFORMATION
  Report Type: 
  Country: None (occurrence: None)
  Receive Date: 20100702
  Receipt Date: 20100623
  Transmission Date: 20110219
  Serious: Yes (Hospitalization)
  Sender: FDA-Public Use
  Company Number: US-PFIZER INC-2010041169

PATIENT
  Sex: Female

DRUGS (2)
  1. SUNITINIB MALATE [Suspect]
     Indication: RENAL CELL CARCINOMA
     Dosage: 50 MG, 1X/DAY
     Route: 048
     Dates: start: 20100223
  2. CANDESARTAN CILEXETIL [Concomitant]
     Dosage: UNK
     Dates: start: 20100315

REACTIONS (4)
  - HYPONATRAEMIA [None]
  - HYPOVOLAEMIA [None]
  - NEUTROPENIA [None]
  - PANCREATITIS [None]
